FAERS Safety Report 6128312-4 (Version None)
Quarter: 2009Q1

REPORT INFORMATION
  Report Type: 
  Country: None (occurrence: None)
  Receive Date: 20090323
  Receipt Date: 20090317
  Transmission Date: 20090719
  Serious: Yes (Other)
  Sender: FDA-Public Use
  Company Number: A0773618A

PATIENT
  Age: 49 Year
  Sex: Female

DRUGS (5)
  1. ARIXTRA [Suspect]
     Indication: ANTIPHOSPHOLIPID SYNDROME
     Dosage: 7.5MG PER DAY
     Route: 058
     Dates: start: 20030101
  2. PANCREATIN [Suspect]
     Indication: INFLAMMATION
     Route: 065
     Dates: start: 20090201
  3. TUMERIC [Concomitant]
  4. FISH OIL [Concomitant]
  5. VITAMIN E [Concomitant]

REACTIONS (8)
  - BODY TEMPERATURE DECREASED [None]
  - DRUG INEFFECTIVE [None]
  - DRUG INTERACTION [None]
  - DYSPNOEA [None]
  - HEADACHE [None]
  - MEDICATION ERROR [None]
  - MYOCARDIAL INFARCTION [None]
  - PAIN [None]
